FAERS Safety Report 13179856 (Version 1)
Quarter: 2017Q1

REPORT INFORMATION
  Report Type: Spontaneous
  Country: US (occurrence: US)
  Receive Date: 20170202
  Receipt Date: 20170202
  Transmission Date: 20170428
  Serious: Yes (Other)
  Sender: FDA-Public Use
  Company Number: US-OTSUKA-2017_002161

PATIENT
  Age: 30 Year
  Sex: Male

DRUGS (5)
  1. LUVOX [Interacting]
     Active Substance: FLUVOXAMINE MALEATE
     Indication: SEIZURE
     Dosage: 100 MG, QD
     Route: 065
  2. LEVETIRACETAM. [Concomitant]
     Active Substance: LEVETIRACETAM
     Indication: SEIZURE
     Dosage: 1000 MG, QD (IN THE MORNING)
     Route: 065
  3. LUVOX [Interacting]
     Active Substance: FLUVOXAMINE MALEATE
     Dosage: 300 MG, QD
     Route: 065
  4. NUEDEXTA [Suspect]
     Active Substance: DEXTROMETHORPHAN HYDROBROMIDE\QUINIDINE SULFATE
     Indication: AFFECT LABILITY
     Dosage: 20/10 MG , QD
     Route: 048
     Dates: start: 20170120
  5. LEVETIRACETAM. [Concomitant]
     Active Substance: LEVETIRACETAM
     Dosage: 1500 MG, QD (IN THE EVENING)
     Route: 065

REACTIONS (2)
  - Seizure [Recovered/Resolved]
  - Drug interaction [Unknown]

NARRATIVE: CASE EVENT DATE: 20170126
